FAERS Safety Report 17077095 (Version 1)
Quarter: 2019Q4

REPORT INFORMATION
  Report Type: Spontaneous
  Country: US (occurrence: US)
  Receive Date: 20191126
  Receipt Date: 20191126
  Transmission Date: 20200122
  Serious: No
  Sender: FDA-Public Use
  Company Number: US-SEPTODONT-201905149

PATIENT
  Sex: Male

DRUGS (1)
  1. MARCAINE [Suspect]
     Active Substance: BUPIVACAINE HYDROCHLORIDE
     Indication: DENTAL LOCAL ANAESTHESIA
     Route: 004

REACTIONS (1)
  - Drug ineffective [Unknown]
